FAERS Safety Report 16650570 (Version 1)
Quarter: 2019Q3

REPORT INFORMATION
  Report Type: Spontaneous
  Country: RO (occurrence: RO)
  Receive Date: 20190731
  Receipt Date: 20190731
  Transmission Date: 20191004
  Serious: Yes (Hospitalization, Other)
  Sender: FDA-Public Use
  Company Number: PHHY2019RO176256

PATIENT
  Age: 44 Year
  Sex: Female

DRUGS (4)
  1. QUETIAPINE. [Suspect]
     Active Substance: QUETIAPINE
     Indication: PRODUCT USED FOR UNKNOWN INDICATION
     Dosage: 13 DF, TOTAL (TOTAL DOSE 13 TABLETS)
     Route: 048
  2. ANXIAR [Suspect]
     Active Substance: LORAZEPAM
     Indication: PRODUCT USED FOR UNKNOWN INDICATION
     Dosage: 31 DF, TOTAL (TOTAL DOSE 31 TABLETS)
     Route: 048
  3. CONVULEX (CARBAMAZEPINE) [Suspect]
     Active Substance: CARBAMAZEPINE
     Indication: PRODUCT USED FOR UNKNOWN INDICATION
     Dosage: 32 DF, TOTAL (TOTAL DOSE 32 TABLETS)
     Route: 048
  4. LEVOMEPROMAZINE [Suspect]
     Active Substance: LEVOMEPROMAZINE
     Indication: PRODUCT USED FOR UNKNOWN INDICATION
     Dosage: 13 DF, TOTAL (TOTAL DOSE 13 TABLETS)
     Route: 048

REACTIONS (3)
  - Drug abuse [Unknown]
  - Intentional overdose [Unknown]
  - Suicide attempt [Unknown]
